FAERS Safety Report 18055207 (Version 1)
Quarter: 2020Q3

REPORT INFORMATION
  Report Type: Spontaneous
  Country: US (occurrence: US)
  Receive Date: 20200722
  Receipt Date: 20200722
  Transmission Date: 20201103
  Serious: Yes (Other)
  Sender: FDA-Public Use
  Company Number: US-MYLANLABS-2020M1066228

PATIENT
  Age: 49 Year
  Sex: Male

DRUGS (6)
  1. AZATHIOPRINE. [Suspect]
     Active Substance: AZATHIOPRINE
     Indication: SARCOIDOSIS
     Dosage: DOSE OF AZATHIOPRINE WAS TITRATED UP TO 100MG TWICE A DAY
     Route: 065
  2. HYDROXYCHLOROQUINE [Suspect]
     Active Substance: HYDROXYCHLOROQUINE
     Indication: SARCOIDOSIS
     Dosage: 400 MILLIGRAM, QD
     Route: 065
  3. METHOTREXATE. [Suspect]
     Active Substance: METHOTREXATE
     Indication: SARCOIDOSIS
     Dosage: 15 MILLIGRAM, QW
     Route: 065
  4. PREDNISONE. [Suspect]
     Active Substance: PREDNISONE
     Indication: SARCOIDOSIS
     Dosage: AT THE TIME OF HIS VISIT PATIENT^S REGIMEN INCLUDED PREDNISONE 10 MG
     Route: 065
  5. PREDNISONE. [Suspect]
     Active Substance: PREDNISONE
     Dosage: DUE TO SIGN OF ACTIVE DISEASE, HE WAS TOLD TO INCREASE PREDNISONE TO 40 MG AND START A WEEKLY TAPER
     Route: 065
  6. PREDNISONE. [Suspect]
     Active Substance: PREDNISONE
     Dosage: CURRENTLY TOLERATING A SLOW TAPER, NOW ON 3 MG PER DAY
     Route: 065

REACTIONS (2)
  - Drug ineffective [Unknown]
  - Osteonecrosis [Unknown]
